FAERS Safety Report 20602404 (Version 2)
Quarter: 2022Q1

REPORT INFORMATION
  Report Type: Spontaneous
  Country: US (occurrence: US)
  Receive Date: 20220316
  Receipt Date: 20220328
  Transmission Date: 20220424
  Serious: No
  Sender: FDA-Public Use
  Company Number: US-BAYER-2022A035066

PATIENT
  Age: 51 Year
  Sex: Female

DRUGS (1)
  1. YASMIN [Suspect]
     Active Substance: DROSPIRENONE\ETHINYL ESTRADIOL
     Indication: Migraine prophylaxis
     Dosage: UNK
     Route: 048
     Dates: start: 2017

REACTIONS (8)
  - Intermenstrual bleeding [Not Recovered/Not Resolved]
  - Weight increased [Not Recovered/Not Resolved]
  - Headache [Recovering/Resolving]
  - Skin disorder [Not Recovered/Not Resolved]
  - Suspected product quality issue [None]
  - Off label use [None]
  - Off label use [None]
  - Incorrect product administration duration [None]

NARRATIVE: CASE EVENT DATE: 20170101
